FAERS Safety Report 14611673 (Version 1)
Quarter: 2018Q1

REPORT INFORMATION
  Report Type: Spontaneous
  Country: US (occurrence: GB)
  Receive Date: 20180308
  Receipt Date: 20180308
  Transmission Date: 20180509
  Serious: Yes (Other)
  Sender: FDA-Public Use
  Company Number: US-ACCORD-064100

PATIENT
  Age: 28 Year
  Sex: Female
  Weight: 90.72 kg

DRUGS (1)
  1. CLONAZEPAM ACCORD [Suspect]
     Active Substance: CLONAZEPAM
     Indication: PRODUCT USED FOR UNKNOWN INDICATION
     Dosage: STRENGTH: 0.5 MG
     Route: 048

REACTIONS (15)
  - Nausea [Unknown]
  - Diarrhoea [Unknown]
  - Coordination abnormal [Unknown]
  - Musculoskeletal stiffness [Unknown]
  - Hypotension [Unknown]
  - Supraventricular tachycardia [Unknown]
  - Muscle twitching [Unknown]
  - Hypersomnia [Unknown]
  - Syncope [Unknown]
  - Depression [Unknown]
  - Ehlers-Danlos syndrome [Unknown]
  - Suicidal ideation [Unknown]
  - Paralysis [Unknown]
  - Intentional self-injury [Unknown]
  - Vomiting [Unknown]
